FAERS Safety Report 8963798 (Version 1)
Quarter: 2012Q4

REPORT INFORMATION
  Report Type: 
  Country: US (occurrence: US)
  Receive Date: 20121214
  Receipt Date: 20121214
  Transmission Date: 20130627
  Serious: Yes (Other)
  Sender: FDA-Public Use
  Company Number: PHEH2012US024430

PATIENT
  Sex: Female

DRUGS (8)
  1. DIOVAN [Suspect]
     Dosage: 160 mg, UNK
     Route: 048
  2. CLONIDINE [Concomitant]
  3. AMLODIPINE BESYLATE [Concomitant]
  4. MELOXICAM [Concomitant]
  5. FUROSEMIDE [Concomitant]
  6. POTASSIUM [Concomitant]
  7. ATORVASTATIN [Concomitant]
  8. JANUVIA [Concomitant]

REACTIONS (4)
  - Cerebrovascular accident [Unknown]
  - Arthritis [Unknown]
  - Hypertension [Unknown]
  - Dyspnoea [Unknown]
